FAERS Safety Report 15309242 (Version 1)
Quarter: 2018Q3

REPORT INFORMATION
  Report Type: Spontaneous
  Country: US (occurrence: US)
  Receive Date: 20180811
  Receipt Date: 20180811
  Transmission Date: 20181010
  Serious: Yes (Disabling)
  Sender: FDA-Public Use
  Company Number: None

PATIENT
  Age: 53 Year
  Sex: Male
  Weight: 96.75 kg

DRUGS (1)
  1. VALSARTAN 320 MG [Suspect]
     Active Substance: VALSARTAN
     Indication: HYPERTENSION
     Dosage: ?          QUANTITY:1 TABLET(S);?
     Route: 048
     Dates: start: 20120201, end: 20180801

REACTIONS (19)
  - Asthenia [None]
  - Headache [None]
  - Influenza [None]
  - Nausea [None]
  - Heart rate increased [None]
  - Diarrhoea [None]
  - Weight increased [None]
  - Vision blurred [None]
  - Vomiting [None]
  - Syncope [None]
  - Dizziness [None]
  - Dyspnoea [None]
  - Fatigue [None]
  - Peripheral swelling [None]
  - Abdominal pain upper [None]
  - Back pain [None]
  - Confusional state [None]
  - Chest pain [None]
  - Arthralgia [None]

NARRATIVE: CASE EVENT DATE: 20180705
